FAERS Safety Report 23467506 (Version 1)
Quarter: 2024Q1

REPORT INFORMATION
  Report Type: Report from Study
  Country: GB (occurrence: GB)
  Receive Date: 20240201
  Receipt Date: 20240201
  Transmission Date: 20240410
  Serious: Yes (Other)
  Sender: FDA-Public Use
  Company Number: GB-002147023-NVSC2022GB002634

PATIENT
  Age: 54 Year
  Sex: Female

DRUGS (2)
  1. MAYZENT [Suspect]
     Active Substance: SIPONIMOD
     Indication: Multiple sclerosis
     Dosage: 2 MG, QD
     Route: 048
     Dates: start: 20210104
  2. MAYZENT [Suspect]
     Active Substance: SIPONIMOD
     Indication: Secondary progressive multiple sclerosis
     Dosage: 2 MG, QD
     Route: 048
     Dates: start: 20220104

REACTIONS (14)
  - Multiple sclerosis relapse [Recovering/Resolving]
  - Hypoaesthesia [Unknown]
  - Lower respiratory tract infection [Recovered/Resolved]
  - Multiple sclerosis [Unknown]
  - Condition aggravated [Unknown]
  - Nervousness [Unknown]
  - Headache [Recovered/Resolved]
  - Vision blurred [Recovered/Resolved]
  - Urinary tract infection [Recovered/Resolved]
  - Increased tendency to bruise [Not Recovered/Not Resolved]
  - Fall [Unknown]
  - Head injury [Unknown]
  - Mobility decreased [Unknown]
  - Therapeutic product effect decreased [Not Recovered/Not Resolved]

NARRATIVE: CASE EVENT DATE: 20220104
